FAERS Safety Report 21486541 (Version 1)
Quarter: 2022Q4

REPORT INFORMATION
  Report Type: Spontaneous
  Country: GB (occurrence: GB)
  Receive Date: 20221020
  Receipt Date: 20221020
  Transmission Date: 20230113
  Serious: Yes (Life-Threatening, Other)
  Sender: FDA-Public Use
  Company Number: GB-MYLANLABS-2022M1113569

PATIENT
  Age: 31 Hour
  Sex: Female

DRUGS (3)
  1. NITROGLYCERIN [Suspect]
     Active Substance: NITROGLYCERIN
     Dosage: UNK UNK, QD; (FULL PATCH, EVERY 24 H
     Route: 065
  2. NITROGLYCERIN [Suspect]
     Active Substance: NITROGLYCERIN
     Dosage: UNK;  THREE FULL GTN PATCHES WERE INADVERTENTLY APPLIED FOR A PERIOD OF 5 H
     Route: 065
  3. SALINE [Concomitant]
     Active Substance: SODIUM CHLORIDE
     Indication: Hypervolaemia
     Dosage: 10 MILLILITRE PER KILOGRAM
     Route: 065

REACTIONS (3)
  - Accidental overdose [Recovered/Resolved]
  - Methaemoglobinaemia [Recovered/Resolved]
  - Off label use [Unknown]
